FAERS Safety Report 6823423-X (Version None)
Quarter: 2010Q3

REPORT INFORMATION
  Report Type: 
  Country: None (occurrence: None)
  Receive Date: 20100702
  Receipt Date: 20100622
  Transmission Date: 20110219
  Serious: Yes (Hospitalization)
  Sender: FDA-Public Use
  Company Number: 7005233

PATIENT
  Age: 53 Year
  Sex: Female
  Weight: 91 kg

DRUGS (4)
  1. REBIF [Suspect]
     Indication: MULTIPLE SCLEROSIS
     Dosage: 44 MCG, 3 IN 1 WK, SUBCUTANEOUS
     Route: 058
     Dates: start: 20090706, end: 20100601
  2. REBIF [Suspect]
     Indication: MULTIPLE SCLEROSIS
     Dosage: 44 MCG, 3 IN 1 WK, SUBCUTANEOUS
     Route: 058
     Dates: start: 20100601
  3. BENICAR [Concomitant]
  4. TOPROL-XL [Concomitant]

REACTIONS (11)
  - BACK PAIN [None]
  - CALCINOSIS [None]
  - CONDITION AGGRAVATED [None]
  - EAR PAIN [None]
  - ENURESIS [None]
  - HYPERTENSION [None]
  - INJECTION SITE PAIN [None]
  - MULTIPLE SCLEROSIS RELAPSE [None]
  - NEPHROLITHIASIS [None]
  - PYREXIA [None]
  - URINARY TRACT INFECTION [None]
